FAERS Safety Report 9303200 (Version 3)
Quarter: 2013Q2

REPORT INFORMATION
  Report Type: Spontaneous
  Country: DK (occurrence: DE)
  Receive Date: 20130522
  Receipt Date: 20130617
  Transmission Date: 20140414
  Serious: Yes (Hospitalization, Other)
  Sender: FDA-Public Use
  Company Number: DE-FRI-1000045272

PATIENT
  Age: 0 Day
  Sex: Male
  Weight: 3.8 kg

DRUGS (5)
  1. CITALOPRAM [Suspect]
     Indication: DEPRESSION
     Dosage: 20 MG INCREASED TO 30 MG
     Route: 064
  2. CITALOPRAM [Suspect]
     Dosage: 20 MG INCREASED TO 30 MG
     Route: 064
  3. ATOSIL [Concomitant]
     Indication: RESTLESSNESS
     Route: 064
  4. ORTHOMOL NATAL [Concomitant]
     Indication: PROPHYLAXIS OF NEURAL TUBE DEFECT
     Dosage: 0.5 MG
     Route: 064
     Dates: start: 20120404, end: 20130113
  5. TAVOR [Concomitant]
     Indication: RESTLESSNESS
     Dosage: 0.7143 MG
     Route: 064
     Dates: start: 20121015, end: 20121115

REACTIONS (6)
  - Hypertonia neonatal [Recovered/Resolved]
  - Agitation neonatal [Recovered/Resolved]
  - Neonatal hyponatraemia [Recovered/Resolved]
  - Temperature regulation disorder [Recovered/Resolved]
  - Neonatal respiratory distress syndrome [Recovered/Resolved]
  - Foetal exposure during pregnancy [Recovered/Resolved]
